FAERS Safety Report 8313976-7 (Version None)
Quarter: 2012Q2

REPORT INFORMATION
  Report Type: 
  Country: None (occurrence: None)
  Receive Date: 20120426
  Receipt Date: 20120411
  Transmission Date: 20120825
  Serious: Yes (Other)
  Sender: FDA-Public Use
  Company Number: US-PFIZER INC-2012021919

PATIENT
  Age: 49 Year
  Sex: Male
  Weight: 74 kg

DRUGS (5)
  1. GEMFIBROZIL [Concomitant]
     Dosage: 600 MG, 2X/DAY
  2. METFORMIN HCL [Suspect]
     Indication: SUICIDE ATTEMPT
     Dosage: 52 G, UNK
     Route: 048
  3. GLIBENCLAMIDE [Suspect]
     Indication: SUICIDE ATTEMPT
     Dosage: 350 MG, UNK
     Route: 048
  4. VARDENAFIL [Concomitant]
     Indication: SEXUAL DYSFUNCTION
     Dosage: 10 MG, AS NEEDED
  5. LISINOPRIL [Concomitant]
     Dosage: 5 MG, 1X/DAY

REACTIONS (17)
  - NECROSIS [None]
  - STREPTOCOCCUS TEST POSITIVE [None]
  - DRUG LEVEL ABOVE THERAPEUTIC [None]
  - INTENTIONAL OVERDOSE [None]
  - HYPERNATRAEMIA [None]
  - RESPIRATORY FAILURE [None]
  - HYPOGLYCAEMIA [None]
  - OTITIS EXTERNA [None]
  - THROMBOCYTOPENIA [None]
  - LACTIC ACIDOSIS [None]
  - DEAFNESS NEUROSENSORY [None]
  - HYPOTENSION [None]
  - HYPERGLYCAEMIA [None]
  - STAPHYLOCOCCUS TEST POSITIVE [None]
  - UNRESPONSIVE TO STIMULI [None]
  - LEUKOCYTOSIS [None]
  - PYREXIA [None]
